FAERS Safety Report 24196084 (Version 2)
Quarter: 2024Q3

REPORT INFORMATION
  Report Type: Spontaneous
  Country: GB (occurrence: GB)
  Receive Date: 20240809
  Receipt Date: 20240812
  Transmission Date: 20241016
  Serious: Yes (Other)
  Sender: TEVA
  Company Number: None

PATIENT
  Age: 21 Year
  Sex: Male

DRUGS (3)
  1. BACLOFEN [Suspect]
     Active Substance: BACLOFEN
     Indication: Hypertonia
     Dosage: AT NIGHT
     Route: 065
     Dates: start: 2019
  2. TOLNAFTATE [Concomitant]
     Active Substance: TOLNAFTATE
     Indication: Nail discolouration
     Route: 065
     Dates: start: 20240626, end: 20240803
  3. TERBINAFINE [Concomitant]
     Active Substance: TERBINAFINE
     Indication: Nail discolouration
     Route: 065
     Dates: start: 20240626, end: 20240803

REACTIONS (11)
  - Breath odour [Not Recovered/Not Resolved]
  - Incontinence [Recovering/Resolving]
  - Hypertonia [Not Recovered/Not Resolved]
  - Hyperhidrosis [Not Recovered/Not Resolved]
  - Uraemia odour [Not Recovered/Not Resolved]
  - Malaise [Unknown]
  - Lip dry [Not Recovered/Not Resolved]
  - Insomnia [Not Recovered/Not Resolved]
  - Condition aggravated [Not Recovered/Not Resolved]
  - Discomfort [Unknown]
  - Dyspepsia [Not Recovered/Not Resolved]

NARRATIVE: CASE EVENT DATE: 20240601
